FAERS Safety Report 7368535-X (Version None)
Quarter: 2011Q1

REPORT INFORMATION
  Report Type: 
  Country: None (occurrence: None)
  Receive Date: 20110317
  Receipt Date: 20110317
  Transmission Date: 20110831
  Serious: Yes (Other)
  Sender: FDA-Public Use
  Company Number: None

PATIENT
  Sex: Female
  Weight: 65.8623 kg

DRUGS (2)
  1. BONIVA [Suspect]
     Indication: SENILE OSTEOPOROSIS
     Dosage: 3MG/3ML Q 3 MONTHS IV
     Route: 042
     Dates: start: 20101202
  2. BONIVA [Suspect]
     Indication: SENILE OSTEOPOROSIS
     Dosage: 3MG/3ML Q 3 MONTHS IV
     Route: 042
     Dates: start: 20110303

REACTIONS (10)
  - FAECAL INCONTINENCE [None]
  - VOMITING [None]
  - TONGUE DISORDER [None]
  - DYSPEPSIA [None]
  - SYNCOPE [None]
  - THROAT IRRITATION [None]
  - FEELING ABNORMAL [None]
  - DYSPNOEA [None]
  - HYPERHIDROSIS [None]
  - LOSS OF CONSCIOUSNESS [None]
